FAERS Safety Report 8554157 (Version 3)
Quarter: 2012Q4

REPORT INFORMATION
  Report Type: 
  Country: US (occurrence: US)
  Receive Date: 20120509
  Receipt Date: 20121105
  Transmission Date: 20130627
  Serious: Yes (Death, Hospitalization)
  Sender: FDA-Public Use
  Company Number: US-GLAXOSMITHKLINE-A0874762A

PATIENT
  Age: 77 Year
  Sex: Female

DRUGS (1)
  1. AVANDIA [Suspect]
     Indication: TYPE 2 DIABETES MELLITUS
     Route: 048
     Dates: start: 20060323, end: 20100312

REACTIONS (5)
  - Cerebrovascular accident [Fatal]
  - Cerebral haemorrhage [Unknown]
  - Atrial fibrillation [Unknown]
  - Atrial flutter [Unknown]
  - Supraventricular tachycardia [Unknown]
